FAERS Safety Report 10169876 (Version 6)
Quarter: 2015Q2

REPORT INFORMATION
  Report Type: Spontaneous
  Country: US (occurrence: US)
  Receive Date: 20140513
  Receipt Date: 20150612
  Transmission Date: 20150821
  Serious: Yes (Hospitalization, Other)
  Sender: FDA-Public Use
  Company Number: US-009507513-1405USA002365

PATIENT
  Sex: Female
  Weight: 81.63 kg

DRUGS (2)
  1. ALENDRONATE SODIUM. [Suspect]
     Active Substance: ALENDRONATE SODIUM
     Indication: OSTEOPOROSIS PROPHYLAXIS
     Dosage: 70 MG, QW
     Route: 048
     Dates: start: 200802, end: 201104
  2. FOSAMAX [Suspect]
     Active Substance: ALENDRONATE SODIUM
     Indication: OSTEOPOROSIS PROPHYLAXIS
     Dosage: 70 MG, QW
     Route: 048
     Dates: start: 199909, end: 20090710

REACTIONS (20)
  - Femur fracture [Recovered/Resolved]
  - Fall [Unknown]
  - Varicose vein operation [Unknown]
  - Femur fracture [Recovered/Resolved]
  - Dental implantation [Unknown]
  - Intramedullary rod insertion [Unknown]
  - Facial bones fracture [Unknown]
  - Groin abscess [Unknown]
  - Incisional drainage [Unknown]
  - Hypothyroidism [Unknown]
  - Tooth extraction [Unknown]
  - Spinal osteoarthritis [Unknown]
  - Cellulitis [Unknown]
  - Intramedullary rod insertion [Unknown]
  - Fall [Unknown]
  - Osteoarthritis [Unknown]
  - Plastic surgery to the face [Unknown]
  - Wound [Unknown]
  - Osteoporosis [Unknown]
  - Blood cholesterol increased [Unknown]

NARRATIVE: CASE EVENT DATE: 1999
